FAERS Safety Report 20338561 (Version 2)
Quarter: 2022Q1

REPORT INFORMATION
  Report Type: Spontaneous
  Country: US (occurrence: US)
  Receive Date: 20220116
  Receipt Date: 20220214
  Transmission Date: 20220423
  Serious: No
  Sender: FDA-Public Use
  Company Number: US-SA-SAC20220110000448

PATIENT
  Age: 57 Year

DRUGS (2)
  1. KEVZARA [Suspect]
     Active Substance: SARILUMAB
     Indication: Rheumatoid arthritis
     Dosage: 200 MG, QOW
     Route: 058
     Dates: start: 20211124
  2. NITROFURANTOIN [Suspect]
     Active Substance: NITROFURANTOIN

REACTIONS (2)
  - Rash [Unknown]
  - Drug hypersensitivity [Unknown]
